FAERS Safety Report 12386334 (Version 3)
Quarter: 2017Q1

REPORT INFORMATION
  Report Type: Report from Study
  Country: JP (occurrence: JP)
  Receive Date: 20160519
  Receipt Date: 20170223
  Transmission Date: 20170428
  Serious: Yes (Death, Other)
  Sender: FDA-Public Use
  Company Number: JP-INCYTE CORPORATION-2015IN005532

PATIENT
  Age: 64 Year
  Sex: Male

DRUGS (18)
  1. JAKAVI [Suspect]
     Active Substance: RUXOLITINIB
     Dosage: 15 MG, BID
     Route: 048
     Dates: start: 20150217, end: 20150316
  2. JAKAVI [Suspect]
     Active Substance: RUXOLITINIB
     Dosage: 10 MG, BID
     Route: 048
     Dates: start: 20150317, end: 20150406
  3. JAKAVI [Suspect]
     Active Substance: RUXOLITINIB
     Dosage: 15 MG, BID
     Route: 048
     Dates: start: 20150407, end: 20150518
  4. HYDREA [Concomitant]
     Active Substance: HYDROXYUREA
     Indication: MYELOFIBROSIS
     Dosage: 1000 MG, UNK
     Route: 048
     Dates: end: 20151117
  5. JAKAVI [Suspect]
     Active Substance: RUXOLITINIB
     Dosage: 10 MG, BID
     Route: 048
     Dates: start: 20141202, end: 20141215
  6. LASTET [Concomitant]
     Active Substance: ETOPOSIDE
     Dosage: 25 MG, UNK
     Route: 048
     Dates: start: 20150709, end: 20150722
  7. JAKAVI [Suspect]
     Active Substance: RUXOLITINIB
     Dosage: 15 MG, BID
     Route: 048
     Dates: start: 20141216, end: 20150119
  8. JAKAVI [Suspect]
     Active Substance: RUXOLITINIB
     Dosage: 20 MG, BID
     Route: 048
     Dates: start: 20150120, end: 20150216
  9. HYDREA [Concomitant]
     Active Substance: HYDROXYUREA
     Indication: PLATELET COUNT DECREASED
     Dosage: 1000 MG, UNK
     Route: 048
     Dates: end: 20150525
  10. HYDREA [Concomitant]
     Active Substance: HYDROXYUREA
     Dosage: 500 MG, UNK
     Route: 048
     Dates: start: 20150526, end: 20150603
  11. EXJADE [Concomitant]
     Active Substance: DEFERASIROX
     Indication: ANAEMIA
     Dosage: UNK
     Route: 048
  12. HYDREA [Concomitant]
     Active Substance: HYDROXYUREA
     Dosage: 2000 MG, UNK
     Route: 048
     Dates: start: 20150611, end: 20151015
  13. JAKAVI [Suspect]
     Active Substance: RUXOLITINIB
     Indication: MYELOFIBROSIS
     Dosage: 5 MG, BID
     Route: 048
     Dates: start: 20141118, end: 20141201
  14. JAKAVI [Suspect]
     Active Substance: RUXOLITINIB
     Dosage: 20 MG, BID
     Route: 048
     Dates: start: 20150519, end: 20151015
  15. HYDREA [Concomitant]
     Active Substance: HYDROXYUREA
     Dosage: 1000 MG, UNK
     Route: 048
     Dates: start: 20150604, end: 20150610
  16. LASTET [Concomitant]
     Active Substance: ETOPOSIDE
     Dosage: 50 MG, UNK
     Route: 048
     Dates: start: 20150723, end: 20151005
  17. HYDREA [Concomitant]
     Active Substance: HYDROXYUREA
     Dosage: 1000 MG, UNK
     Route: 048
     Dates: start: 20151016
  18. LASTET [Concomitant]
     Active Substance: ETOPOSIDE
     Indication: MYELOFIBROSIS
     Dosage: 25 MG, UNK
     Route: 048
     Dates: start: 20150709, end: 20151005

REACTIONS (7)
  - Acute leukaemia [Unknown]
  - Respiratory failure [Unknown]
  - Bone marrow failure [Unknown]
  - Anaemia [Recovering/Resolving]
  - Circulatory collapse [Unknown]
  - Pneumonia [Fatal]
  - Platelet count decreased [Not Recovered/Not Resolved]

NARRATIVE: CASE EVENT DATE: 20150217
